FAERS Safety Report 9909813 (Version 1)
Quarter: 2014Q1

REPORT INFORMATION
  Report Type: Spontaneous
  Country: US (occurrence: None)
  Receive Date: 20140218
  Receipt Date: 20140218
  Transmission Date: 20141002
  Serious: No
  Sender: FDA-Public Use
  Company Number: None

PATIENT
  Age: 57 Year
  Sex: Male
  Weight: 102.06 kg

DRUGS (1)
  1. AMPHETAMINE SALTS ER 20MG [Suspect]
     Dosage: 1 CAPSULE ONCE DAILY TAKEN BY MOUTH
     Route: 048

REACTIONS (5)
  - Drug ineffective [None]
  - Lethargy [None]
  - Product formulation issue [None]
  - Product quality issue [None]
  - Product substitution issue [None]
